FAERS Safety Report 7422756-6 (Version None)
Quarter: 2011Q2

REPORT INFORMATION
  Report Type: 
  Country: None (occurrence: None)
  Receive Date: 20110419
  Receipt Date: 20110406
  Transmission Date: 20111010
  Serious: Yes (Hospitalization, Other)
  Sender: FDA-Public Use
  Company Number: US-AMGEN-USASP2011018352

PATIENT
  Sex: Female

DRUGS (9)
  1. XANAX [Concomitant]
  2. LASIX [Concomitant]
  3. METOPROLOL [Concomitant]
  4. PROLIA [Suspect]
     Indication: OSTEOPOROSIS
     Dosage: 60 MG, Q6MO
     Dates: start: 20101025
  5. CREON [Concomitant]
  6. MIRAPEX                            /01356401/ [Concomitant]
  7. LEXAPRO [Concomitant]
     Dates: end: 20110301
  8. CALCIUM WITH VITAMIN D             /00944201/ [Concomitant]
  9. VITAMIN A [Concomitant]

REACTIONS (7)
  - PAIN IN EXTREMITY [None]
  - ATRIAL FIBRILLATION [None]
  - PAIN [None]
  - BURNING SENSATION [None]
  - PARKINSON'S DISEASE [None]
  - VASCULAR RESISTANCE PULMONARY INCREASED [None]
  - ARTHRALGIA [None]
